FAERS Safety Report 21586741 (Version 1)
Quarter: 2022Q4

REPORT INFORMATION
  Report Type: Report from Study
  Country: US (occurrence: US)
  Receive Date: 20221113
  Receipt Date: 20221113
  Transmission Date: 20230112
  Serious: Yes (Life-Threatening, Hospitalization, Disabling, Other)
  Sender: FDA-Public Use
  Company Number: US-CELGENE-USA-20200700184

PATIENT
  Age: 62 Year
  Sex: Male

DRUGS (190)
  1. OZANIMOD [Suspect]
     Active Substance: OZANIMOD
     Indication: Colitis ulcerative
     Dosage: FREQUENCY TEXT: NOT PROVIDED
     Route: 048
     Dates: start: 20180924, end: 20181207
  2. OZANIMOD [Suspect]
     Active Substance: OZANIMOD
     Dosage: FREQUENCY TEXT: NOT PROVIDED
     Route: 048
     Dates: start: 20181207, end: 20190114
  3. OZANIMOD [Suspect]
     Active Substance: OZANIMOD
     Dosage: FREQUENCY TEXT: NOT PROVIDED
     Route: 048
     Dates: start: 20190114, end: 20190225
  4. OZANIMOD [Suspect]
     Active Substance: OZANIMOD
     Dosage: FREQUENCY TEXT: NOT PROVIDED
     Route: 048
     Dates: start: 20190225, end: 20190520
  5. OZANIMOD [Suspect]
     Active Substance: OZANIMOD
     Dosage: FREQUENCY TEXT: NOT PROVIDED
     Route: 048
     Dates: start: 20190520, end: 20190813
  6. OZANIMOD [Suspect]
     Active Substance: OZANIMOD
     Dosage: FREQUENCY TEXT: NOT PROVIDED
     Route: 048
     Dates: start: 20190813, end: 20191104
  7. OZANIMOD [Suspect]
     Active Substance: OZANIMOD
     Dosage: FREQUENCY TEXT: NOT PROVIDED
     Route: 048
     Dates: start: 20191104, end: 20200128
  8. OZANIMOD [Suspect]
     Active Substance: OZANIMOD
     Dosage: FREQUENCY TEXT: NOT PROVIDED
     Route: 048
     Dates: start: 20210316, end: 20210603
  9. OZANIMOD [Suspect]
     Active Substance: OZANIMOD
     Dosage: FREQUENCY TEXT: NOT PROVIDED
     Route: 048
     Dates: start: 20200128, end: 20200420
  10. OZANIMOD [Suspect]
     Active Substance: OZANIMOD
     Dosage: FREQUENCY TEXT: NOT PROVIDED
     Route: 048
     Dates: start: 20201012, end: 20201228
  11. OZANIMOD [Suspect]
     Active Substance: OZANIMOD
     Dosage: FREQUENCY TEXT: NOT PROVIDED
     Route: 048
     Dates: start: 20201228, end: 20210316
  12. OZANIMOD [Suspect]
     Active Substance: OZANIMOD
     Dosage: FREQUENCY TEXT: NOT PROVIDED
     Route: 048
     Dates: start: 20210316, end: 20210603
  13. OZANIMOD [Suspect]
     Active Substance: OZANIMOD
     Dosage: FREQUENCY TEXT: NOT PROVIDED
     Route: 048
     Dates: start: 20210603, end: 20210907
  14. OZANIMOD [Suspect]
     Active Substance: OZANIMOD
     Dosage: FREQUENCY TEXT: NOT PROVIDED
     Route: 048
     Dates: start: 20210607, end: 20211130
  15. OZANIMOD [Suspect]
     Active Substance: OZANIMOD
     Dosage: FREQUENCY TEXT: NOT PROVIDED
     Route: 048
     Dates: start: 20211130, end: 20220412
  16. OZANIMOD [Suspect]
     Active Substance: OZANIMOD
     Dosage: FREQUENCY TEXT: NOT PROVIDED
     Route: 048
     Dates: start: 20220525
  17. CHOLECYSTOKININ [Concomitant]
     Active Substance: CHOLECYSTOKININ
     Indication: Product used for unknown indication
     Dosage: FREQUENCY TEXT: NOT PROVIDED
     Route: 042
  18. LOSARTAN [Concomitant]
     Active Substance: LOSARTAN
     Indication: Hypertension
     Dosage: 100 MILLIGRAM
     Route: 048
     Dates: start: 2008, end: 20200616
  19. LOSARTAN [Concomitant]
     Active Substance: LOSARTAN
     Dosage: FREQUENCY TEXT: ONCE
     Route: 048
     Dates: start: 20200617, end: 20200617
  20. LOSARTAN [Concomitant]
     Active Substance: LOSARTAN
     Dosage: 50 MILLIGRAM
     Route: 048
     Dates: start: 20200617, end: 20200618
  21. LOSARTAN [Concomitant]
     Active Substance: LOSARTAN
     Dosage: 100 MILLIGRAM
     Route: 048
     Dates: start: 20200619, end: 20200629
  22. LOSARTAN [Concomitant]
     Active Substance: LOSARTAN
     Dosage: 25 MILLIGRAM
     Route: 048
     Dates: start: 20200630, end: 20200704
  23. LOSARTAN [Concomitant]
     Active Substance: LOSARTAN
     Dosage: 50 MILLIGRAM
     Route: 048
     Dates: start: 20200723
  24. ASPIRIN [Concomitant]
     Active Substance: ASPIRIN
     Indication: Arthritis
     Dosage: 81 MILLIGRAM
     Route: 048
     Dates: start: 2008, end: 20210720
  25. INVOKANA [Concomitant]
     Active Substance: CANAGLIFLOZIN
     Indication: Type 2 diabetes mellitus
     Dosage: 300 MILLIGRAM
     Route: 048
     Dates: start: 2015
  26. ACETAMINOPHEN [Concomitant]
     Active Substance: ACETAMINOPHEN
     Indication: Arthritis
     Dosage: FREQUENCY TEXT: AS NEEDED?500 MILLIGRAM
     Route: 048
     Dates: start: 2008
  27. ACETAMINOPHEN [Concomitant]
     Active Substance: ACETAMINOPHEN
     Indication: Pain
     Dosage: 2600 MILLIGRAM
     Route: 048
     Dates: start: 20200604, end: 20200612
  28. ACETAMINOPHEN [Concomitant]
     Active Substance: ACETAMINOPHEN
     Dosage: FREQUENCY TEXT: AS NEEDED
     Route: 048
     Dates: start: 20200624, end: 20200707
  29. ACETAMINOPHEN [Concomitant]
     Active Substance: ACETAMINOPHEN
     Dosage: FREQUENCY TEXT: AS NEEDED
     Route: 048
     Dates: start: 20200626, end: 20200629
  30. WARFARIN [Concomitant]
     Active Substance: WARFARIN
     Indication: Peripheral vascular disorder
     Dosage: 3 MILLIGRAM
     Route: 048
     Dates: start: 2008
  31. WARFARIN [Concomitant]
     Active Substance: WARFARIN
     Indication: Anticoagulant therapy
     Dosage: 5 MILLIGRAM
     Route: 048
     Dates: start: 20200623, end: 20200623
  32. WARFARIN [Concomitant]
     Active Substance: WARFARIN
     Indication: Thrombosis prophylaxis
     Dosage: 2 MILLIGRAM
     Route: 048
     Dates: start: 20200627, end: 20200627
  33. WARFARIN [Concomitant]
     Active Substance: WARFARIN
     Dosage: .5 MILLIGRAM
     Route: 048
     Dates: start: 20200704, end: 20200704
  34. WARFARIN [Concomitant]
     Active Substance: WARFARIN
     Dosage: 1 MILLIGRAM
     Route: 048
     Dates: start: 20200702, end: 20200702
  35. WARFARIN [Concomitant]
     Active Substance: WARFARIN
     Dosage: 1 MILLIGRAM
     Route: 048
     Dates: start: 20200705, end: 20200706
  36. WARFARIN [Concomitant]
     Active Substance: WARFARIN
     Dosage: 5 MILLIGRAM
     Route: 048
     Dates: start: 20201201, end: 20201211
  37. WARFARIN [Concomitant]
     Active Substance: WARFARIN
     Dosage: 3 MILLIGRAM
     Route: 048
     Dates: start: 20201219
  38. WARFARIN [Concomitant]
     Active Substance: WARFARIN
     Dosage: 3 MILLIGRAM
     Route: 048
     Dates: start: 20200624, end: 20200626
  39. WARFARIN [Concomitant]
     Active Substance: WARFARIN
     Dosage: 3 MILLIGRAM
     Route: 048
     Dates: start: 20200628, end: 20200628
  40. VICTOZA [Concomitant]
     Active Substance: LIRAGLUTIDE
     Indication: Type 2 diabetes mellitus
     Dosage: DAILY DOSE : 1.8 OUNCE?UNIT DOSE : 1.8 OUNCE?1.8 OUNCE
     Route: 058
     Dates: start: 2017
  41. OXYCODONE [Concomitant]
     Active Substance: OXYCODONE
     Indication: Arthralgia
     Dosage: FREQUENCY TEXT: AS NEEDED?5-3.25 MG
     Route: 048
     Dates: start: 20181019
  42. OXYCODONE [Concomitant]
     Active Substance: OXYCODONE
     Dosage: FREQUENCY TEXT: PRN
     Route: 048
     Dates: start: 20200604, end: 20200707
  43. OXYCODONE [Concomitant]
     Active Substance: OXYCODONE
     Dosage: FREQUENCY TEXT: PRN
     Route: 048
     Dates: start: 20200604, end: 20200622
  44. OXYCODONE [Concomitant]
     Active Substance: OXYCODONE
     Dosage: FREQUENCY TEXT: PRN
     Route: 048
     Dates: start: 20200629, end: 20200629
  45. NOVOLOG [Concomitant]
     Active Substance: INSULIN ASPART
     Indication: Diabetes mellitus
     Dosage: 1 INJECTION
     Route: 030
     Dates: start: 201909
  46. OZEMPIC [Concomitant]
     Active Substance: SEMAGLUTIDE
     Indication: Diabetes mellitus
     Dosage: .25 MILLIGRAM
     Route: 030
     Dates: start: 20200114
  47. CEPHALEXIN [Concomitant]
     Active Substance: CEPHALEXIN
     Indication: Localised infection
     Dosage: 1000 MILLIGRAM
     Route: 048
     Dates: start: 20200413
  48. ATORVASTATIN [Concomitant]
     Active Substance: ATORVASTATIN
     Indication: Hyperlipidaemia
     Dosage: 80 MILLIGRAM
     Route: 048
     Dates: start: 202003, end: 202006
  49. PREDNISONE [Concomitant]
     Active Substance: PREDNISONE
     Indication: Inflammatory bowel disease
     Dosage: 20 MILLIGRAM
     Route: 048
     Dates: start: 20180417, end: 20181018
  50. PREDNISONE [Concomitant]
     Active Substance: PREDNISONE
     Dosage: 10 MILLIGRAM
     Route: 048
     Dates: start: 20181109, end: 20181211
  51. PREDNISONE [Concomitant]
     Active Substance: PREDNISONE
     Dosage: 10 MILLIGRAM
     Route: 048
     Dates: start: 20181212, end: 201904
  52. PREDNISONE [Concomitant]
     Active Substance: PREDNISONE
     Dosage: 15 MILLIGRAM
     Route: 048
     Dates: start: 201904, end: 201905
  53. PREDNISONE [Concomitant]
     Active Substance: PREDNISONE
     Dosage: 10 MILLIGRAM
     Route: 048
     Dates: start: 20190702, end: 20200128
  54. PREDNISONE [Concomitant]
     Active Substance: PREDNISONE
     Dosage: 12.5 MILLIGRAM
     Route: 048
     Dates: start: 201905, end: 20190701
  55. PREDNISONE [Concomitant]
     Active Substance: PREDNISONE
     Dosage: 7.5 MILLIGRAM
     Route: 048
     Dates: start: 20200129, end: 20200212
  56. PREDNISONE [Concomitant]
     Active Substance: PREDNISONE
     Dosage: 5 MILLIGRAM
     Route: 048
     Dates: start: 20200213, end: 20200304
  57. PREDNISONE [Concomitant]
     Active Substance: PREDNISONE
     Dosage: 2.5 MILLIGRAM
     Route: 048
     Dates: start: 20200305, end: 20200420
  58. PREDNISONE [Concomitant]
     Active Substance: PREDNISONE
     Dosage: 7.5 MILLIGRAM
     Route: 048
     Dates: start: 20200423
  59. PREDNISONE [Concomitant]
     Active Substance: PREDNISONE
     Dosage: 12.5 MILLIGRAM
     Route: 048
     Dates: start: 20200619, end: 20200619
  60. PREDNISONE [Concomitant]
     Active Substance: PREDNISONE
     Dosage: 20 MILLIGRAM
     Route: 048
     Dates: start: 20200620, end: 20200627
  61. PREDNISONE [Concomitant]
     Active Substance: PREDNISONE
     Dosage: 15 MILLIGRAM
     Route: 048
     Dates: start: 20200728, end: 202009
  62. PREDNISONE [Concomitant]
     Active Substance: PREDNISONE
     Dosage: 12.5 MILLIGRAM
     Route: 048
     Dates: start: 202009, end: 20200922
  63. PREDNISONE [Concomitant]
     Active Substance: PREDNISONE
     Dosage: 15 MILLIGRAM
     Route: 048
     Dates: start: 20200923, end: 202011
  64. PREDNISONE [Concomitant]
     Active Substance: PREDNISONE
     Dosage: 30 MILLIGRAM
     Route: 048
     Dates: start: 202011, end: 20201122
  65. PREDNISONE [Concomitant]
     Active Substance: PREDNISONE
     Dosage: 25 MILLIGRAM
     Route: 048
     Dates: start: 20201130, end: 20201213
  66. PREDNISONE [Concomitant]
     Active Substance: PREDNISONE
     Dosage: 15 MILLIGRAM
     Route: 048
     Dates: start: 20201214, end: 20201220
  67. PREDNISONE [Concomitant]
     Active Substance: PREDNISONE
     Dosage: 10 MILLIGRAM
     Route: 048
     Dates: start: 20201221
  68. COLCHICINE [Concomitant]
     Active Substance: COLCHICINE
     Indication: Gout
     Dosage: 1.2 MILLIGRAM
     Route: 048
     Dates: start: 20200403, end: 20200413
  69. COLCHICINE [Concomitant]
     Active Substance: COLCHICINE
     Indication: Cellulitis
     Dosage: 1.2 MILLIGRAM
     Route: 048
     Dates: start: 20200413, end: 20200413
  70. INSULIN LISPRO [Concomitant]
     Active Substance: INSULIN LISPRO
     Indication: Type 2 diabetes mellitus
     Dosage: FREQUENCY TEXT: AS NEEDED
     Route: 058
     Dates: start: 20200609, end: 20200609
  71. INSULIN LISPRO [Concomitant]
     Active Substance: INSULIN LISPRO
     Dosage: FREQUENCY TEXT: AS NEEDED?2 UNITS
     Route: 058
     Dates: start: 20200609, end: 20200609
  72. INSULIN LISPRO [Concomitant]
     Active Substance: INSULIN LISPRO
     Dosage: FREQUENCY TEXT: AS NEEDED?3 UNITS
     Route: 058
     Dates: start: 20200607, end: 20200610
  73. INSULIN LISPRO [Concomitant]
     Active Substance: INSULIN LISPRO
     Dosage: 4 UNITS
     Route: 058
     Dates: start: 20200608, end: 20200608
  74. INSULIN LISPRO [Concomitant]
     Active Substance: INSULIN LISPRO
     Dosage: FREQUENCY TEXT: AS NEEDED?6 UNITS
     Route: 058
     Dates: start: 20200607, end: 20200705
  75. INSULIN LISPRO [Concomitant]
     Active Substance: INSULIN LISPRO
     Dosage: 7 UNITS
     Route: 058
     Dates: start: 20200623, end: 20200623
  76. INSULIN LISPRO [Concomitant]
     Active Substance: INSULIN LISPRO
     Dosage: 6 UNITS
     Route: 058
     Dates: start: 20200624, end: 20200628
  77. INSULIN LISPRO [Concomitant]
     Active Substance: INSULIN LISPRO
     Dosage: 8 UNITS
     Route: 058
     Dates: start: 20200609, end: 20200706
  78. INSULIN LISPRO [Concomitant]
     Active Substance: INSULIN LISPRO
     Dosage: 16 UNITS
     Route: 058
     Dates: start: 20201206, end: 20201217
  79. IODIXANOL [Concomitant]
     Active Substance: IODIXANOL
     Indication: Diagnostic aspiration
     Dosage: 33 MILLILITER
     Route: 042
     Dates: start: 20200603, end: 20200603
  80. IODIXANOL [Concomitant]
     Active Substance: IODIXANOL
     Dosage: FREQUENCY TEXT: ONCE
     Route: 042
     Dates: start: 20200604, end: 20200604
  81. KETOROLAC [Concomitant]
     Active Substance: KETOROLAC TROMETHAMINE
     Indication: Pain
     Dosage: 45 MILLIGRAM
     Route: 042
     Dates: start: 20200619, end: 20200621
  82. KETOROLAC [Concomitant]
     Active Substance: KETOROLAC TROMETHAMINE
     Indication: Ischaemia
  83. LABETALOL [Concomitant]
     Active Substance: LABETALOL\LABETALOL HYDROCHLORIDE
     Indication: Hypertension
     Dosage: FREQUENCY TEXT: ONCE
     Route: 042
     Dates: start: 20200611, end: 20200611
  84. LABETALOL [Concomitant]
     Active Substance: LABETALOL\LABETALOL HYDROCHLORIDE
     Dosage: FREQUENCY TEXT: AS NEEDED
     Route: 042
     Dates: start: 20200603, end: 20200610
  85. LACTOBACILLUS ACIDOPHILUS [Concomitant]
     Active Substance: LACTOBACILLUS ACIDOPHILUS
     Indication: Probiotic therapy
     Dosage: UNIT DOSE : 1 CAPSULE?FREQUENCY TEXT: AS NEEDED
     Route: 048
     Dates: start: 20200619, end: 20200707
  86. LIDOCAINE PATCH [Concomitant]
     Active Substance: LIDOCAINE
     Indication: Local anaesthesia
     Dosage: FREQUENCY TEXT: AS NEEDED
     Route: 062
     Dates: start: 20200618, end: 20200707
  87. LIDOCAINE PATCH [Concomitant]
     Active Substance: LIDOCAINE
     Indication: Sigmoidoscopy
     Dosage: 60 MILLIGRAM
     Route: 042
     Dates: start: 20190813, end: 20190813
  88. LIDOCAINE PATCH [Concomitant]
     Active Substance: LIDOCAINE
     Indication: Back pain
     Dosage: FREQUENCY TEXT: AS NEEDED
     Route: 023
     Dates: start: 20200603, end: 20200624
  89. LIDOCAINE PATCH [Concomitant]
     Active Substance: LIDOCAINE
     Indication: Arthralgia
     Dosage: FREQUENCY TEXT: AS NEEDED
     Route: 061
     Dates: start: 202006
  90. LORATADINE [Concomitant]
     Active Substance: LORATADINE
     Indication: Antiallergic therapy
     Dosage: FREQUENCY TEXT: ONCE
     Route: 048
     Dates: start: 20200610, end: 20200610
  91. LORATADINE [Concomitant]
     Active Substance: LORATADINE
     Indication: Ischaemia
  92. LORATADINE [Concomitant]
     Active Substance: LORATADINE
     Indication: Allergy prophylaxis
  93. MAGNESIUM HYDROXIDE [Concomitant]
     Active Substance: MAGNESIUM HYDROXIDE
     Indication: Laxative supportive care
     Dosage: FREQUENCY TEXT: AS NEEDED
     Route: 048
     Dates: start: 20200606, end: 20200624
  94. MAGNESIUM HYDROXIDE [Concomitant]
     Active Substance: MAGNESIUM HYDROXIDE
     Indication: Constipation
  95. IOPAMIDOL [Concomitant]
     Active Substance: IOPAMIDOL
     Indication: Diagnostic aspiration
     Dosage: FREQUENCY TEXT: AS NEEDED
     Route: 042
     Dates: start: 20200607, end: 20200618
  96. IOPAMIDOL [Concomitant]
     Active Substance: IOPAMIDOL
     Dosage: FREQUENCY TEXT: ONCE
     Route: 042
     Dates: start: 20200629, end: 20200629
  97. IOPAMIDOL [Concomitant]
     Active Substance: IOPAMIDOL
     Dosage: FREQUENCY TEXT: AS NEEDED
     Route: 042
     Dates: start: 20201214, end: 20201214
  98. PROPOFOL [Concomitant]
     Active Substance: PROPOFOL
     Indication: Sigmoidoscopy
     Dosage: 6.16 MILLIGRAM
     Route: 042
     Dates: start: 20190219, end: 20190219
  99. PROPOFOL [Concomitant]
     Active Substance: PROPOFOL
     Indication: Colonoscopy
     Dosage: 100 MILLIGRAM
     Route: 042
     Dates: start: 20190813, end: 20190813
  100. FARXIGA [Concomitant]
     Active Substance: DAPAGLIFLOZIN PROPANEDIOL
     Indication: Diabetes mellitus
     Dosage: 10 MILLIGRAM
     Route: 048
     Dates: start: 20200114
  101. SODIUM CHLORIDE [Concomitant]
     Active Substance: SODIUM CHLORIDE
     Indication: Electrolyte substitution therapy
     Dosage: 1000 MILLILITRE
     Route: 042
     Dates: start: 20200607, end: 20200607
  102. SODIUM CHLORIDE [Concomitant]
     Active Substance: SODIUM CHLORIDE
     Dosage: 1000 MILLILITRE
     Route: 042
     Dates: start: 20200611, end: 20200611
  103. SODIUM CHLORIDE [Concomitant]
     Active Substance: SODIUM CHLORIDE
     Dosage: 500 MILLILITER
     Route: 042
     Dates: start: 20200614, end: 20200614
  104. SODIUM CHLORIDE [Concomitant]
     Active Substance: SODIUM CHLORIDE
     Dosage: 1000 MILLILITER
     Route: 042
     Dates: start: 20200603, end: 20200607
  105. SODIUM CHLORIDE [Concomitant]
     Active Substance: SODIUM CHLORIDE
     Dosage: 500 MILLILITER
     Route: 042
     Dates: start: 20200629, end: 20200630
  106. SODIUM CHLORIDE [Concomitant]
     Active Substance: SODIUM CHLORIDE
     Dosage: FREQUENCY TEXT: AS NEEDED
     Route: 042
     Dates: start: 20201206, end: 20201208
  107. SODIUM CHLORIDE [Concomitant]
     Active Substance: SODIUM CHLORIDE
     Dosage: FREQUENCY TEXT: AS NEEDED
     Route: 042
     Dates: start: 202012, end: 202012
  108. CALCIUM GLUCONATE [Concomitant]
     Active Substance: CALCIUM GLUCONATE
     Indication: Mineral supplementation
     Dosage: 2 MILLIGRAM
     Route: 042
     Dates: start: 20200614, end: 20200614
  109. DIATRIZOATE MEGLUMINE [Concomitant]
     Active Substance: DIATRIZOATE MEGLUMINE
     Indication: Product used for unknown indication
     Dosage: 30 MILLILITER
     Route: 042
     Dates: start: 20200618, end: 20200618
  110. DOCUSATE SODIUM [Concomitant]
     Active Substance: DOCUSATE SODIUM
     Indication: Faeces soft
     Dosage: FREQUENCY TEXT: AS NEEDED?100 MILLIGRAM
     Route: 048
     Dates: start: 20200606, end: 20200624
  111. EPINEPHRINE [Concomitant]
     Active Substance: EPINEPHRINE
     Indication: Cardiac arrest
     Dosage: 1 MILLIGRAM
     Route: 042
     Dates: start: 20200611, end: 20200611
  112. GABAPENTIN [Concomitant]
     Active Substance: GABAPENTIN
     Indication: Neuralgia
     Dosage: 100 MILLIGRAM
     Route: 048
     Dates: start: 20200621, end: 20200622
  113. GABAPENTIN [Concomitant]
     Active Substance: GABAPENTIN
     Dosage: 900 MILLIGRAM
     Route: 048
     Dates: start: 20200623
  114. HEPARIN [Concomitant]
     Active Substance: HEPARIN SODIUM
     Indication: Thrombosis prophylaxis
     Dosage: FREQUENCY TEXT: AS NEEDED
     Route: 042
     Dates: start: 20200602, end: 20200603
  115. HEPARIN [Concomitant]
     Active Substance: HEPARIN SODIUM
     Dosage: FREQUENCY TEXT: AS NEEDED?5000 UNITS
     Route: 042
     Dates: start: 20200603, end: 20200603
  116. HEPARIN [Concomitant]
     Active Substance: HEPARIN SODIUM
     Dosage: 1000 UNITS
     Route: 042
     Dates: start: 20200604, end: 20200604
  117. HEPARIN [Concomitant]
     Active Substance: HEPARIN SODIUM
     Dosage: 8000 UNITS
     Route: 042
     Dates: start: 20200611, end: 20200611
  118. HEPARIN [Concomitant]
     Active Substance: HEPARIN SODIUM
     Dosage: FREQUENCY TEXT: AS NEEDED?1800 UNITS
     Route: 042
     Dates: start: 20200607, end: 20200612
  119. HYDROCORTISONE [Concomitant]
     Active Substance: HYDROCORTISONE
     Indication: Pain
     Dosage: FREQUENCY TEXT: AS NEEDED?50 MILLIGRAM
     Route: 042
     Dates: start: 20200611, end: 20200616
  120. HYDROCORTISONE [Concomitant]
     Active Substance: HYDROCORTISONE
     Indication: Pruritus
     Dosage: 2.5 PERCENT
     Route: 061
     Dates: start: 20200623, end: 20200707
  121. HYDROCORTISONE [Concomitant]
     Active Substance: HYDROCORTISONE
     Dosage: 25 MILLIGRAM
     Route: 061
     Dates: start: 20200630, end: 20200706
  122. HYDROCORTISONE [Concomitant]
     Active Substance: HYDROCORTISONE
     Dosage: 50 MILLIGRAM
     Route: 061
     Dates: start: 20201206, end: 20201217
  123. INSULIN GLARGINE [Concomitant]
     Active Substance: INSULIN GLARGINE
     Indication: Type 2 diabetes mellitus
     Dosage: 5 UNITS
     Route: 065
     Dates: start: 20200609, end: 20200609
  124. INSULIN GLARGINE [Concomitant]
     Active Substance: INSULIN GLARGINE
     Dosage: 10 UNITS
     Route: 058
     Dates: start: 20200610, end: 20200610
  125. INSULIN GLARGINE [Concomitant]
     Active Substance: INSULIN GLARGINE
     Dosage: 12 UNITS
     Route: 058
     Dates: start: 20200611, end: 20200618
  126. INSULIN GLARGINE [Concomitant]
     Active Substance: INSULIN GLARGINE
     Dosage: 16 UNITS
     Route: 058
     Dates: start: 20200620, end: 20200620
  127. INSULIN GLARGINE [Concomitant]
     Active Substance: INSULIN GLARGINE
     Dosage: 18 UNITS
     Route: 058
     Dates: start: 20200621, end: 20200623
  128. INSULIN GLARGINE [Concomitant]
     Active Substance: INSULIN GLARGINE
     Dosage: 18 UNITS
     Route: 058
     Dates: start: 20200625, end: 20200706
  129. DEXTROSE [Concomitant]
     Active Substance: DEXTROSE
     Indication: Fluid replacement
     Dosage: FREQUENCY TEXT: AS NEEDED
     Route: 042
     Dates: start: 20200616, end: 20200624
  130. DEXTROSE [Concomitant]
     Active Substance: DEXTROSE
     Dosage: FREQUENCY TEXT: AS NEEDED
     Route: 042
     Dates: start: 20200629, end: 20200701
  131. INSULIN REGULAR HUMAN [Concomitant]
     Indication: Type 2 diabetes mellitus
     Dosage: 6 UNITS
     Route: 058
     Dates: start: 20200611, end: 20200616
  132. METHOCARBAMOL [Concomitant]
     Active Substance: METHOCARBAMOL
     Indication: Muscle spasms
     Dosage: FREQUENCY TEXT: AS NEEDED
     Route: 048
     Dates: start: 20200617, end: 20200621
  133. METHOCARBAMOL [Concomitant]
     Active Substance: METHOCARBAMOL
     Dosage: FREQUENCY TEXT: AS NEEDED
     Route: 048
     Dates: start: 20200621, end: 20200707
  134. METOCLOPRAMIDE [Concomitant]
     Active Substance: METOCLOPRAMIDE
     Indication: Inflammatory bowel disease
     Dosage: FREQUENCY TEXT: AS NEEDED
     Route: 042
     Dates: start: 20200604, end: 20200608
  135. MIDAZOLAM [Concomitant]
     Active Substance: MIDAZOLAM
     Indication: Ischaemia
     Dosage: FREQUENCY TEXT: AS NEEDED
     Route: 042
     Dates: start: 20200603, end: 20200604
  136. MIDAZOLAM [Concomitant]
     Active Substance: MIDAZOLAM
     Dosage: FREQUENCY TEXT: AS NEEDED
     Route: 042
     Dates: start: 20200611, end: 20200616
  137. MIDAZOLAM [Concomitant]
     Active Substance: MIDAZOLAM
     Dosage: FREQUENCY TEXT: AS NEEDED
     Route: 042
     Dates: start: 20201211, end: 20201211
  138. MORPHINE [Concomitant]
     Active Substance: MORPHINE
     Indication: Pain
     Dosage: 30 MILLIGRAM
     Route: 048
     Dates: start: 20200623, end: 20200707
  139. MORPHINE [Concomitant]
     Active Substance: MORPHINE
     Indication: Pain
     Dosage: 1 MILLIGRAM
     Route: 042
     Dates: start: 20200618, end: 20200618
  140. MORPHINE [Concomitant]
     Active Substance: MORPHINE
     Indication: Back pain
     Dosage: FREQUENCY TEXT: AS NEEDED
     Route: 042
     Dates: start: 20200616, end: 20200619
  141. MORPHINE [Concomitant]
     Active Substance: MORPHINE
     Dosage: FREQUENCY TEXT: AS NEEDED
     Route: 042
     Dates: start: 20200629, end: 20200629
  142. MORPHINE [Concomitant]
     Active Substance: MORPHINE
     Dosage: FREQUENCY TEXT: AS NEEDED
     Route: 042
     Dates: start: 20200629, end: 20200629
  143. MORPHINE [Concomitant]
     Active Substance: MORPHINE
     Dosage: FREQUENCY TEXT: AS NEEDED
     Route: 048
     Dates: start: 20200629, end: 20200827
  144. MORPHINE [Concomitant]
     Active Substance: MORPHINE
     Dosage: FREQUENCY TEXT: AS NEEDED
     Route: 042
     Dates: start: 20201206, end: 20201207
  145. ONDANSETRON [Concomitant]
     Active Substance: ONDANSETRON
     Indication: Nausea
     Dosage: FREQUENCY TEXT: AS NEEDED
     Route: 048
     Dates: start: 20200604, end: 20200629
  146. ONDANSETRON [Concomitant]
     Active Substance: ONDANSETRON
     Indication: Nausea
     Dosage: FREQUENCY TEXT: AS NEEDED
     Route: 042
     Dates: start: 20201206, end: 20201206
  147. VITAMINS [Concomitant]
     Active Substance: VITAMINS
     Indication: Supplementation therapy
     Route: 048
     Dates: start: 20200607, end: 20200707
  148. PANTOPRAZOLE [Concomitant]
     Active Substance: PANTOPRAZOLE
     Indication: Gastric ulcer
     Dosage: FREQUENCY TEXT: AS NEEDED
     Route: 042
     Dates: start: 20200608, end: 20200616
  149. PANTOPRAZOLE [Concomitant]
     Active Substance: PANTOPRAZOLE
     Indication: Inflammatory bowel disease
     Dosage: 80 MILLIGRAM
     Route: 048
     Dates: start: 20200616
  150. PANTOPRAZOLE [Concomitant]
     Active Substance: PANTOPRAZOLE
     Dosage: FREQUENCY TEXT: AS NEEDED
     Route: 042
     Dates: start: 20201206, end: 20201208
  151. PANTOPRAZOLE [Concomitant]
     Active Substance: PANTOPRAZOLE
     Dosage: 80 MILLIGRAM
     Route: 048
     Dates: start: 20201208
  152. PIPERACILLIN SODIUM\TAZOBACTAM SODIUM [Concomitant]
     Active Substance: PIPERACILLIN SODIUM\TAZOBACTAM SODIUM
     Indication: Infection
     Dosage: 10.125 MILLIGRAM
     Route: 042
     Dates: start: 20200611, end: 20200619
  153. PIPERACILLIN SODIUM\TAZOBACTAM SODIUM [Concomitant]
     Active Substance: PIPERACILLIN SODIUM\TAZOBACTAM SODIUM
     Indication: Sepsis
     Dosage: FREQUENCY TEXT: AS NEEDED
     Route: 042
     Dates: start: 20200629, end: 20200707
  154. PIPERACILLIN SODIUM\TAZOBACTAM SODIUM [Concomitant]
     Active Substance: PIPERACILLIN SODIUM\TAZOBACTAM SODIUM
     Dosage: FREQUENCY TEXT: AS NEEDED
     Route: 042
     Dates: start: 20201206, end: 20201217
  155. POLYETHYLENE GLYCOL [Concomitant]
     Active Substance: POLYETHYLENE GLYCOL
     Indication: Constipation
     Dosage: 17 GRAM
     Route: 065
     Dates: start: 20200614, end: 20200616
  156. POLYETHYLENE GLYCOL [Concomitant]
     Active Substance: POLYETHYLENE GLYCOL
     Dosage: 17 GRAM
     Route: 065
     Dates: start: 20200620, end: 20200707
  157. POLYETHYLENE GLYCOL [Concomitant]
     Active Substance: POLYETHYLENE GLYCOL
     Dosage: 17 GRAM
     Route: 048
     Dates: start: 20200629, end: 20200707
  158. POTASSIUM CHLORIDE [Concomitant]
     Active Substance: POTASSIUM CHLORIDE
     Indication: Hypokalaemia
     Dosage: 40 MILLIEQUIVALENTS
     Route: 048
     Dates: start: 20200610, end: 20200610
  159. POTASSIUM CHLORIDE [Concomitant]
     Active Substance: POTASSIUM CHLORIDE
     Dosage: 40 MILLIEQUIVALENTS
     Route: 048
     Dates: start: 20201209, end: 20201217
  160. Potassium phosphate and sodium phosphate [Concomitant]
     Indication: Hypokalaemia
     Dosage: 2 PACKETS
     Route: 048
     Dates: start: 20200614, end: 20200614
  161. LIDOCAINE [Concomitant]
     Active Substance: LIDOCAINE
     Indication: Routine health maintenance
     Dosage: FREQUENCY TEXT: AS NEEDED
     Route: 023
     Dates: start: 20200603, end: 20200624
  162. LIDOCAINE [Concomitant]
     Active Substance: LIDOCAINE
     Dosage: FREQUENCY TEXT: AS NEEDED
     Route: 023
     Dates: start: 20200701, end: 20200701
  163. Senna docusate [Concomitant]
     Indication: Constipation
     Route: 048
     Dates: start: 20200613, end: 20200618
  164. Senna docusate [Concomitant]
     Dosage: 8.6 MILLIGRAM
     Route: 048
     Dates: start: 20200629, end: 20200706
  165. SODIUM HYPOCHLORITE [Concomitant]
     Active Substance: SODIUM HYPOCHLORITE
     Indication: Infection prophylaxis
     Dosage: FREQUENCY TEXT: AS NEEDED
     Route: 062
     Dates: start: 20200618, end: 20200618
  166. TAMSULOSIN [Concomitant]
     Active Substance: TAMSULOSIN
     Indication: Urinary retention
     Dosage: 0.4 MILLIGRAM
     Route: 048
     Dates: start: 20200620, end: 20200629
  167. BISACODYL [Concomitant]
     Active Substance: BISACODYL
     Indication: Constipation
     Dosage: FREQUENCY TEXT: AS NEEDED
     Route: 054
     Dates: start: 20200629, end: 20200629
  168. BISACODYL [Concomitant]
     Active Substance: BISACODYL
     Dosage: FREQUENCY TEXT: AS NEEDED
     Route: 048
     Dates: start: 20201208, end: 20201213
  169. LACTATED RINGERS SOLUTION [Concomitant]
     Active Substance: CALCIUM CHLORIDE\POTASSIUM CHLORIDE\SODIUM CHLORIDE\SODIUM LACTATE
     Indication: Fluid replacement
     Dosage: 250 MILLILITER
     Route: 042
     Dates: start: 20200629, end: 20200629
  170. LACTATED RINGERS SOLUTION [Concomitant]
     Active Substance: CALCIUM CHLORIDE\POTASSIUM CHLORIDE\SODIUM CHLORIDE\SODIUM LACTATE
     Dosage: 1000 MILLILITER
     Route: 042
     Dates: start: 20200629, end: 20200702
  171. LACTATED RINGERS SOLUTION [Concomitant]
     Active Substance: CALCIUM CHLORIDE\POTASSIUM CHLORIDE\SODIUM CHLORIDE\SODIUM LACTATE
     Dosage: FREQUENCY TEXT: AS NEEDED
     Route: 042
     Dates: start: 20201206, end: 20201211
  172. AMOXICILLIN\CLAVULANIC ACID [Concomitant]
     Active Substance: AMOXICILLIN\CLAVULANIC ACID
     Indication: Cholecystitis acute
     Dosage: 1750 MILLIGRAM
     Route: 048
     Dates: start: 20200703, end: 20200707
  173. AMOXICILLIN\CLAVULANIC ACID [Concomitant]
     Active Substance: AMOXICILLIN\CLAVULANIC ACID
     Dosage: 875-125 MG
     Route: 048
     Dates: start: 20201218, end: 20201225
  174. NYSTATIN [Concomitant]
     Active Substance: NYSTATIN
     Indication: Fungal infection
     Dosage: 5 MILLILITER
     Route: 048
     Dates: start: 20200702, end: 20200707
  175. SINCALIDE [Concomitant]
     Active Substance: SINCALIDE
     Indication: Radiotherapy
     Dosage: .83 MICROGRAM
     Route: 042
     Dates: start: 20200630, end: 20200630
  176. ADENOSINE [Concomitant]
     Active Substance: ADENOSINE
     Indication: Chest pain
     Dosage: 46.3 MILLIGRAM
     Route: 042
     Dates: start: 20201210, end: 20201210
  177. AMLODIPINE [Concomitant]
     Active Substance: AMLODIPINE BESYLATE
     Indication: Hypertension
     Dosage: 5 MILLIGRAM
     Route: 048
     Dates: start: 20201211, end: 20201212
  178. AMLODIPINE [Concomitant]
     Active Substance: AMLODIPINE BESYLATE
     Dosage: 10 MILLIGRAM
     Route: 048
     Dates: start: 20201213, end: 20201217
  179. CEFTRIAXONE [Concomitant]
     Active Substance: CEFTRIAXONE
     Indication: Cholecystitis acute
     Dosage: 2 GRAM
     Route: 042
     Dates: start: 20201206, end: 20201206
  180. CEFTRIAXONE [Concomitant]
     Active Substance: CEFTRIAXONE
     Indication: Sepsis
  181. METRONIDAZOLE [Concomitant]
     Active Substance: METRONIDAZOLE
     Indication: Sepsis
     Dosage: 500 MILLIGRAM
     Route: 042
     Dates: start: 20201206, end: 20201206
  182. METRONIDAZOLE [Concomitant]
     Active Substance: METRONIDAZOLE
     Indication: Cholecystitis acute
  183. CLOPIDOGREL [Concomitant]
     Active Substance: CLOPIDOGREL BISULFATE
     Indication: Thrombosis prophylaxis
     Dosage: FREQUENCY TEXT: AS NEEDED
     Route: 048
     Dates: start: 20200610
  184. CLOPIDOGREL [Concomitant]
     Active Substance: CLOPIDOGREL BISULFATE
     Indication: Cholecystitis acute
  185. Dextrose 5% Nacl 0.45% [Concomitant]
     Indication: Fluid replacement
     Dosage: FREQUENCY TEXT: CONTINUOUS?1500 MILLILITER
     Route: 042
     Dates: start: 20200619, end: 20200624
  186. Dextrose 5% Nacl 0.45% [Concomitant]
     Indication: Ischaemia
     Dosage: FREQUENCY TEXT: CONTINUOUS?1500 MILLILITER
     Route: 042
     Dates: start: 20200629, end: 20200701
  187. HUMALOG [Concomitant]
     Active Substance: INSULIN LISPRO
     Indication: Diabetes mellitus
     Dosage: 50 IU (INTERNATIONAL UNIT)
     Route: 058
     Dates: start: 20180911, end: 201909
  188. MAGNESIUM CITRATE [Concomitant]
     Active Substance: MAGNESIUM CITRATE
     Indication: Bowel preparation
     Dosage: FREQUENCY TEXT: 1
     Route: 065
     Dates: start: 20180916, end: 20180916
  189. ENOXAPARIN [Concomitant]
     Active Substance: ENOXAPARIN
     Indication: Thrombosis prophylaxis
     Dosage: 150 MILLIGRAM
     Route: 058
     Dates: start: 20200529, end: 20200602
  190. ENOXAPARIN [Concomitant]
     Active Substance: ENOXAPARIN
     Dosage: 10 MILLIGRAM
     Route: 048
     Dates: start: 20201213, end: 20201217

REACTIONS (3)
  - Peripheral ischaemia [Recovered/Resolved]
  - Cholecystitis acute [Recovered/Resolved]
  - Sepsis [Recovered/Resolved]

NARRATIVE: CASE EVENT DATE: 20200603
